FAERS Safety Report 6680766-0 (Version None)
Quarter: 2010Q2

REPORT INFORMATION
  Report Type: 
  Country: None (occurrence: None)
  Receive Date: 20100414
  Receipt Date: 20100331
  Transmission Date: 20101027
  Serious: Yes (Other)
  Sender: FDA-Public Use
  Company Number: PHHY2010US20622

PATIENT

DRUGS (1)
  1. ZOMETA [Suspect]

REACTIONS (2)
  - GINGIVAL CYST [None]
  - GINGIVAL INFECTION [None]
